FAERS Safety Report 8341690-0 (Version None)
Quarter: 2012Q2

REPORT INFORMATION
  Report Type: 
  Country: None (occurrence: None)
  Receive Date: 20120507
  Receipt Date: 20120426
  Transmission Date: 20120825
  Serious: Yes (Hospitalization, Other)
  Sender: FDA-Public Use
  Company Number: US-JNJFOC-20120212347

PATIENT
  Sex: Female
  Weight: 57.5 kg

DRUGS (9)
  1. LOVAZA [Concomitant]
  2. LINOLEIC ACID [Concomitant]
  3. VSL3 [Concomitant]
  4. RIFAXIMIN [Concomitant]
  5. VANCOMYCIN [Concomitant]
  6. CITRACAL W / VITAMIN D [Concomitant]
  7. INFLIXIMAB, RECOMBINANT [Suspect]
     Indication: COLITIS ULCERATIVE
     Route: 042
     Dates: start: 20111003
  8. OMEPRAZOLE [Concomitant]
  9. MESALAMINE [Concomitant]
     Indication: INFLAMMATORY BOWEL DISEASE
     Route: 048

REACTIONS (2)
  - COLITIS ULCERATIVE [None]
  - CLOSTRIDIAL INFECTION [None]
